FAERS Safety Report 16609068 (Version 1)
Quarter: 2019Q3

REPORT INFORMATION
  Report Type: Spontaneous
  Country: GB (occurrence: GB)
  Receive Date: 20190720
  Receipt Date: 20190720
  Transmission Date: 20191004
  Serious: Yes (Hospitalization)
  Sender: FDA-Public Use
  Company Number: None

PATIENT
  Age: 40 Year
  Sex: Female
  Weight: 51.75 kg

DRUGS (1)
  1. VENLAFLAXINE PROLONGED RELEASE 75MG [Suspect]
     Active Substance: VENLAFAXINE HYDROCHLORIDE
     Dosage: ?          QUANTITY:1 TABLET(S);?
     Route: 048
     Dates: start: 20190711, end: 20190715

REACTIONS (7)
  - Confusional state [None]
  - Panic attack [None]
  - Vision blurred [None]
  - Dizziness [None]
  - Psychotic disorder [None]
  - Tremor [None]
  - Behaviour disorder [None]

NARRATIVE: CASE EVENT DATE: 20190715
